FAERS Safety Report 9929075 (Version 1)
Quarter: 2014Q1

REPORT INFORMATION
  Report Type: Spontaneous
  Country: IR (occurrence: None)
  Receive Date: 20140225
  Receipt Date: 20140225
  Transmission Date: 20141002
  Serious: Yes (Death, Hospitalization)
  Sender: FDA-Public Use
  Company Number: IR-INDICUS PHARMA-000235

PATIENT
  Age: 42 Year
  Sex: Male

DRUGS (2)
  1. METFORMIN HYDROCHLORIDE (METFORMIN HYDROCHLORIDE) [Suspect]
     Indication: DIABETES MELLITUS
  2. CREATINE [Suspect]
     Indication: PRODUCT USED FOR UNKNOWN INDICATION

REACTIONS (11)
  - Metabolic acidosis [None]
  - Lactic acidosis [None]
  - Pulmonary oedema [None]
  - Renal failure acute [None]
  - Cardiac arrest [None]
  - Asthenia [None]
  - Decreased appetite [None]
  - Abdominal pain [None]
  - Somnolence [None]
  - Malaise [None]
  - Urine output decreased [None]
